FAERS Safety Report 9855301 (Version 1)
Quarter: 2014Q1

REPORT INFORMATION
  Report Type: Spontaneous
  Country: PE (occurrence: PE)
  Receive Date: 20140130
  Receipt Date: 20140130
  Transmission Date: 20141002
  Serious: Yes (Other)
  Sender: FDA-Public Use
  Company Number: PE-JNJFOC-20140114265

PATIENT
  Age: 75 Year
  Sex: Female

DRUGS (1)
  1. REMINYL [Suspect]
     Indication: COGNITIVE DISORDER
     Route: 048
     Dates: start: 201401

REACTIONS (3)
  - Drug prescribing error [Unknown]
  - Nausea [Unknown]
  - Off label use [Unknown]
